FAERS Safety Report 23645122 (Version 4)
Quarter: 2024Q2

REPORT INFORMATION
  Report Type: Spontaneous
  Country: US (occurrence: US)
  Receive Date: 20240318
  Receipt Date: 20240628
  Transmission Date: 20240716
  Serious: Yes (Other)
  Sender: FDA-Public Use
  Company Number: US-PFIZER INC-202400065164

PATIENT
  Age: 67 Year
  Sex: Female
  Weight: 81.646 kg

DRUGS (9)
  1. CORTEF [Suspect]
     Active Substance: HYDROCORTISONE
     Indication: Adrenal insufficiency
     Dosage: 25 MG (TAKES 15MG IN THE MORNING AND 10MG IN THE AFTERNOON BY MOUTH)
     Route: 048
     Dates: start: 20050801, end: 20240303
  2. CORTEF [Suspect]
     Active Substance: HYDROCORTISONE
     Dosage: 15MG AM, 10MG PM (10 MG EVENING)
     Route: 048
     Dates: start: 20240305
  3. CORTEF [Suspect]
     Active Substance: HYDROCORTISONE
     Dosage: 20 MG MORNING
     Route: 048
     Dates: start: 20240306
  4. FLUDROCORTISONE [Concomitant]
     Active Substance: FLUDROCORTISONE
     Indication: Adrenal insufficiency
     Dosage: UNK
     Route: 048
  5. FLUDROCORTISONE [Concomitant]
     Active Substance: FLUDROCORTISONE
     Dosage: 0.05 MG, ONCE DAILY
  6. SYNTHROID [Concomitant]
     Active Substance: LEVOTHYROXINE SODIUM
     Indication: Hypothyroidism
     Dosage: TAKE ON HOUR EARLIER
     Dates: start: 1995
  7. SYNTHROID [Concomitant]
     Active Substance: LEVOTHYROXINE SODIUM
     Dosage: 50 UG, ONCE DAILY
  8. LORAZEPAM [Concomitant]
     Active Substance: LORAZEPAM
     Indication: Anxiety
     Dosage: UNK
     Route: 048
     Dates: start: 2016
  9. LORAZEPAM [Concomitant]
     Active Substance: LORAZEPAM
     Dosage: 1 MG, TWICE DAILY

REACTIONS (5)
  - Adrenal insufficiency [Recovered/Resolved]
  - Shoulder operation [Recovered/Resolved]
  - Colon cancer [Recovered/Resolved]
  - Neoplasm recurrence [Recovered/Resolved]
  - Blood potassium decreased [Unknown]

NARRATIVE: CASE EVENT DATE: 20101012
